FAERS Safety Report 8056649-0 (Version None)
Quarter: 2012Q1

REPORT INFORMATION
  Report Type: 
  Country: None (occurrence: None)
  Receive Date: 20120119
  Receipt Date: 20120110
  Transmission Date: 20120608
  Serious: Yes (Hospitalization)
  Sender: FDA-Public Use
  Company Number: US-VIROPHARMA INCORPORATED-20120110CINRY2557

PATIENT
  Sex: Female

DRUGS (1)
  1. CINRYZE [Suspect]
     Indication: HEREDITARY ANGIOEDEMA
     Dosage: UNKNOWN
     Route: 065
     Dates: end: 20111001

REACTIONS (6)
  - VOMITING [None]
  - PYREXIA [None]
  - CHILLS [None]
  - HOT FLUSH [None]
  - HEADACHE [None]
  - HEREDITARY ANGIOEDEMA [None]
